FAERS Safety Report 17065322 (Version 1)
Quarter: 2019Q4

REPORT INFORMATION
  Report Type: Spontaneous
  Country: US (occurrence: US)
  Receive Date: 20191122
  Receipt Date: 20191122
  Transmission Date: 20200122
  Serious: Yes (Hospitalization)
  Sender: FDA-Public Use
  Company Number: None

PATIENT
  Age: 61 Year
  Sex: Male

DRUGS (9)
  1. SULFASALAZIN TAB 500 MG [Concomitant]
  2. ENBREL [Suspect]
     Active Substance: ETANERCEPT
     Indication: RHEUMATOID ARTHRITIS
     Dosage: ?          OTHER FREQUENCY:ONCE WEEKLY;?
     Route: 058
     Dates: start: 20160318
  3. METHOTREXATE TAB 2.5 MG [Concomitant]
  4. CYCLOBENAZEPRINE TAB 7.5 MG [Concomitant]
  5. ASPIRIN LOW TAB 81 MG EC [Concomitant]
  6. MOBIC TAB 7.5 MG [Concomitant]
  7. FOLIC ACID TAB 1 MG [Concomitant]
  8. LORTAB ELX 10-300 MG [Concomitant]
  9. VITAMIN D CAP 50000 UNIT [Concomitant]

REACTIONS (3)
  - Condition aggravated [None]
  - Rheumatoid arthritis [None]
  - Gait disturbance [None]
